FAERS Safety Report 4273104-4 (Version None)
Quarter: 2004Q1

REPORT INFORMATION
  Report Type: 
  Country: None (occurrence: None)
  Receive Date: 20040116
  Receipt Date: 20040112
  Transmission Date: 20041129
  Serious: Yes (Death, Hospitalization)
  Sender: FDA-Public Use
  Company Number: PHNU2004DE00511

PATIENT
  Age: 61 Year
  Sex: Female

DRUGS (3)
  1. CO-DIOVAN [Suspect]
     Indication: HYPERTENSION
     Route: 048
     Dates: start: 20030401
  2. CARBAMAZEPINE [Concomitant]
  3. COAPROVEL                               /GFR/ [Suspect]

REACTIONS (11)
  - ACUTE ABDOMEN [None]
  - ASTHENIA [None]
  - BLOOD CREATINE PHOSPHOKINASE INCREASED [None]
  - DERMATITIS BULLOUS [None]
  - DERMATOMYOSITIS [None]
  - DYSPNOEA [None]
  - LIVER FUNCTION TEST ABNORMAL [None]
  - MALIGNANT NEOPLASM PROGRESSION [None]
  - MEDICATION ERROR [None]
  - METASTASIS [None]
  - OVARIAN CANCER [None]
